FAERS Safety Report 6744011-X (Version None)
Quarter: 2010Q2

REPORT INFORMATION
  Report Type: 
  Country: None (occurrence: None)
  Receive Date: 20100527
  Receipt Date: 20100519
  Transmission Date: 20101027
  Serious: Yes (Hospitalization)
  Sender: FDA-Public Use
  Company Number: A0784692A

PATIENT
  Age: 46 Year
  Sex: Male

DRUGS (1)
  1. AVANDIA [Suspect]
     Dosage: 4U PER DAY
     Route: 048
     Dates: start: 19990601, end: 20010401

REACTIONS (5)
  - CHEST PAIN [None]
  - DECREASED ACTIVITY [None]
  - DISABILITY [None]
  - DYSPNOEA [None]
  - MYOCARDIAL INFARCTION [None]
